FAERS Safety Report 6472332-7 (Version None)
Quarter: 2009Q4

REPORT INFORMATION
  Report Type: 
  Country: None (occurrence: None)
  Receive Date: 20091201
  Receipt Date: 20091120
  Transmission Date: 20100525
  Serious: Yes (Other)
  Sender: FDA-Public Use
  Company Number: CTI_01093_2009

PATIENT
  Sex: Male

DRUGS (1)
  1. HYOSCYAMINE SULFATE [Suspect]
     Indication: DRUG USE FOR UNKNOWN INDICATION
     Dosage: (DF)

REACTIONS (3)
  - ABDOMINAL PAIN [None]
  - MEDICATION RESIDUE [None]
  - OVERDOSE [None]
